FAERS Safety Report 11245844 (Version 1)
Quarter: 2015Q3

REPORT INFORMATION
  Report Type: Spontaneous
  Country: FR (occurrence: FR)
  Receive Date: 20150707
  Receipt Date: 20150707
  Transmission Date: 20151125
  Serious: Yes (Other)
  Sender: FDA-Public Use
  Company Number: FR-009507513-1501FRA004529

PATIENT
  Age: 28 Year
  Sex: Female
  Weight: 66 kg

DRUGS (1)
  1. NEXPLANON [Suspect]
     Active Substance: ETONOGESTREL
     Indication: CONTRACEPTION
     Dosage: INSERTION IN THE INNER PART OF LEFT ARM
     Route: 059
     Dates: start: 20140326

REACTIONS (3)
  - Unintended pregnancy [Recovered/Resolved]
  - Medical device complication [Not Recovered/Not Resolved]
  - Caesarean section [Recovered/Resolved]

NARRATIVE: CASE EVENT DATE: 20140910
